FAERS Safety Report 7702020-8 (Version None)
Quarter: 2011Q3

REPORT INFORMATION
  Report Type: 
  Country: None (occurrence: None)
  Receive Date: 20110822
  Receipt Date: 20110817
  Transmission Date: 20111222
  Serious: Yes (Death, Other)
  Sender: FDA-Public Use
  Company Number: PHHY2011BR73936

PATIENT
  Sex: Female
  Weight: 0.7 kg

DRUGS (4)
  1. VITAMIN A [Concomitant]
     Route: 064
  2. FUROSEMIDE [Suspect]
     Indication: HYPERTENSION
     Dosage: 1 DF, DAILY
     Route: 064
  3. METHYLDOPA [Suspect]
     Indication: HYPERTENSION
     Dosage: 1 DF, DAILY
     Route: 064
  4. DIOVAN HCT [Suspect]
     Indication: HYPERTENSION
     Dosage: VALSARTAN 80 MG, HYDROCHLOROTHIAZIDE 12.5 MG, DAILY
     Route: 064

REACTIONS (4)
  - RENAL DISORDER [None]
  - PREMATURE BABY [None]
  - SMALL FOR DATES BABY [None]
  - MATERNAL EXPOSURE DURING PREGNANCY [None]
